FAERS Safety Report 18941255 (Version 2)
Quarter: 2021Q2

REPORT INFORMATION
  Report Type: Spontaneous
  Country: US (occurrence: US)
  Receive Date: 20210225
  Receipt Date: 20210419
  Transmission Date: 20210717
  Serious: No
  Sender: FDA-Public Use
  Company Number: US-UCBSA-2021005050

PATIENT
  Sex: Female

DRUGS (2)
  1. ROPINIROL [ROPINIROLE] [Concomitant]
     Indication: PRODUCT USED FOR UNKNOWN INDICATION
     Dosage: 0.5 MILLIGRAM, ONCE DAILY (QD)
  2. NEUPRO [Suspect]
     Active Substance: ROTIGOTINE
     Indication: RESTLESS LEGS SYNDROME
     Dosage: 1 MILLIGRAM, ONCE DAILY (QD)
     Dates: start: 2020

REACTIONS (6)
  - Application site pruritus [Not Recovered/Not Resolved]
  - Product dose omission issue [Unknown]
  - Application site irritation [Unknown]
  - Device adhesion issue [Unknown]
  - Application site rash [Not Recovered/Not Resolved]
  - Drug ineffective [Unknown]
